FAERS Safety Report 19784363 (Version 2)
Quarter: 2021Q3

REPORT INFORMATION
  Report Type: Spontaneous
  Country: US (occurrence: US)
  Receive Date: 20210903
  Receipt Date: 20210914
  Transmission Date: 20211014
  Serious: Yes (Other)
  Sender: FDA-Public Use
  Company Number: US-JNJFOC-20210854600

PATIENT
  Age: 52 Year
  Sex: Male

DRUGS (1)
  1. NEUTROGENA BEACH DEFENSE WATER PLUS SUN PROTECTION SUNSCREEN BROAD SPECTRUM SPF 60 PLUS [Suspect]
     Active Substance: AVOBENZONE\HOMOSALATE\OCTISALATE\OCTOCRYLENE
     Indication: PROPHYLAXIS AGAINST SOLAR RADIATION
     Dosage: THE AMOUNT TO COVER HIS FACE AND NECK, WHATEVER AMOUNT THAT WOULD BE. FULL COVERING. QUITE POSSIBLY
     Route: 061
     Dates: start: 20210523

REACTIONS (4)
  - Malignant melanoma [Recovering/Resolving]
  - Product expiration date issue [Unknown]
  - Application site scar [Unknown]
  - Product lot number issue [Unknown]

NARRATIVE: CASE EVENT DATE: 20210719
